FAERS Safety Report 10308352 (Version 1)
Quarter: 2014Q3

REPORT INFORMATION
  Report Type: Spontaneous
  Country: BR (occurrence: BR)
  Receive Date: 20140716
  Receipt Date: 20140716
  Transmission Date: 20150326
  Serious: Yes (Other)
  Sender: FDA-Public Use
  Company Number: BR-PFIZER INC-2014195663

PATIENT
  Age: 35 Year
  Sex: Female
  Weight: 88 kg

DRUGS (5)
  1. ARTROLIVE [Suspect]
     Active Substance: CHONDROITIN SULFATE (BOVINE)\GLUCOSAMINE SULFATE
     Indication: OSTEOARTHRITIS
     Dosage: 1 DOSAGE FORM (UNSPECIFIED IF TABLET OR CAPSULE) DAILY
     Route: 048
  2. CELEBRA [Suspect]
     Active Substance: CELECOXIB
     Indication: OSTEOARTHRITIS
  3. CELEBRA [Suspect]
     Active Substance: CELECOXIB
     Indication: ARTHRITIS
     Dosage: 200MG (1 CAPSULE) TWICE DAILY
     Route: 048
     Dates: start: 20140611, end: 2014
  4. CELEBRA [Suspect]
     Active Substance: CELECOXIB
     Indication: PAIN
  5. VITAMINA D [Concomitant]
     Dosage: 10 DROPS ONCE DAILY

REACTIONS (1)
  - Poisoning [Unknown]
